FAERS Safety Report 4593095-6 (Version None)
Quarter: 2005Q1

REPORT INFORMATION
  Report Type: 
  Country: None (occurrence: None)
  Receive Date: 20050224
  Receipt Date: 20040107
  Transmission Date: 20050727
  Serious: No
  Sender: FDA-Public Use
  Company Number: US-BRISTOL-MYERS SQUIBB COMPANY-12482113

PATIENT
  Age: 34 Year
  Sex: Male
  Weight: 63 kg

DRUGS (2)
  1. EXCEDRIN (MIGRAINE) [Suspect]
     Indication: HEADACHE
     Dosage: THERAPY FROM: HE BOUGHT THIS BOTTLE ABOUT 23-DEC-03.
     Route: 048
  2. NEXIUM [Concomitant]

REACTIONS (1)
  - DRUG INEFFECTIVE [None]
